FAERS Safety Report 15122061 (Version 1)
Quarter: 2018Q3

REPORT INFORMATION
  Report Type: Spontaneous
  Country: US (occurrence: US)
  Receive Date: 20180613
  Receipt Date: 20180613
  Transmission Date: 20181010
  Serious: Yes (Other)
  Sender: FDA-Public Use
  Company Number: None

PATIENT
  Age: 49 Year
  Sex: Female
  Weight: 45 kg

DRUGS (7)
  1. CIPROFLOXACIN 500MG TAB TEV [Suspect]
     Active Substance: CIPROFLOXACIN
     Indication: GASTROINTESTINAL BACTERIAL OVERGROWTH
     Dosage: ?          QUANTITY:1 DF DOSAGE FORM;?
     Route: 048
     Dates: start: 20180226, end: 20180227
  2. VITAMIN B COMPLEX [Concomitant]
     Active Substance: CYANOCOBALAMIN\DEXPANTHENOL\NIACINAMIDE\PYRIDOXINE HYDROCHLORIDE\RIBOFLAVIN 5^-PHOSPHATE SODIUM\THIAMINE HYDROCHLORIDE\VITAMIN B COMPLEX
  3. ACZONE 7.5% [Concomitant]
  4. DOMPERIDONE [Concomitant]
     Active Substance: DOMPERIDONE
  5. DOXY?CYCLINE HYC [Concomitant]
  6. ZINC. [Concomitant]
     Active Substance: ZINC
  7. MAGNESIUM CITRATE/OXIDE [Concomitant]

REACTIONS (14)
  - Arthralgia [None]
  - Hot flush [None]
  - Crying [None]
  - Joint noise [None]
  - Stomatitis [None]
  - Paraesthesia [None]
  - Chest pain [None]
  - Visual impairment [None]
  - Oropharyngeal pain [None]
  - Herpes virus infection [None]
  - Chills [None]
  - Dysuria [None]
  - Myalgia [None]
  - Musculoskeletal stiffness [None]

NARRATIVE: CASE EVENT DATE: 20180226
